FAERS Safety Report 25333975 (Version 1)
Quarter: 2025Q2

REPORT INFORMATION
  Report Type: Spontaneous
  Country: GB (occurrence: GB)
  Receive Date: 20250520
  Receipt Date: 20250520
  Transmission Date: 20250717
  Serious: Yes (Life-Threatening, Hospitalization, Other)
  Sender: RANBAXY
  Company Number: GB-SUN PHARMACEUTICAL INDUSTRIES LTD-2025RR-507768

PATIENT
  Age: 43 Year
  Sex: Female
  Weight: 45 kg

DRUGS (13)
  1. ATORVASTATIN [Suspect]
     Active Substance: ATORVASTATIN
     Indication: Cerebrovascular accident
     Dosage: 80MG ON
     Route: 065
     Dates: start: 20250226, end: 20250422
  2. PROGESTERONE [Concomitant]
     Active Substance: PROGESTERONE
     Indication: Product used for unknown indication
     Route: 065
  3. AMLODIPINE [Concomitant]
     Active Substance: AMLODIPINE BESYLATE
     Indication: Hypertension
     Route: 065
  4. VITAMIN D [Concomitant]
     Active Substance: VITAMIN D NOS
     Indication: Adverse drug reaction
     Route: 065
  5. CLOPIDOGREL [Concomitant]
     Active Substance: CLOPIDOGREL BISULFATE
     Indication: Embolic stroke
     Route: 065
  6. INSULIN NOS [Concomitant]
     Active Substance: INSULIN NOS
     Indication: Diabetes mellitus
     Route: 065
  7. HYDROXYZINE [Concomitant]
     Active Substance: HYDROXYZINE HYDROCHLORIDE
     Indication: Product used for unknown indication
     Route: 065
  8. LANSOPRAZOLE [Concomitant]
     Active Substance: LANSOPRAZOLE
     Indication: Adverse drug reaction
     Route: 065
  9. POLYETHYLENE GLYCOLS [Concomitant]
     Active Substance: POLYETHYLENE GLYCOLS
     Indication: Constipation prophylaxis
     Route: 065
  10. RAMIPRIL [Concomitant]
     Active Substance: RAMIPRIL
     Indication: Hypertension
     Route: 065
  11. VITAMIN B [Concomitant]
     Active Substance: VITAMIN B
     Indication: Adverse drug reaction
     Route: 065
  12. URSODIOL [Concomitant]
     Active Substance: URSODIOL
     Indication: Product used for unknown indication
     Route: 065
  13. ETHINYL ESTRADIOL\LEVONORGESTREL [Concomitant]
     Active Substance: ETHINYL ESTRADIOL\LEVONORGESTREL
     Indication: Product used for unknown indication
     Route: 065

REACTIONS (5)
  - Polymyositis [Not Recovered/Not Resolved]
  - Muscular weakness [Unknown]
  - Respiratory failure [Unknown]
  - Acute kidney injury [Unknown]
  - Blood creatinine increased [Unknown]

NARRATIVE: CASE EVENT DATE: 20250422
